FAERS Safety Report 6055649-X (Version None)
Quarter: 2009Q1

REPORT INFORMATION
  Report Type: 
  Country: None (occurrence: None)
  Receive Date: 20090123
  Receipt Date: 20090108
  Transmission Date: 20090719
  Serious: Yes (Death)
  Sender: FDA-Public Use
  Company Number: 090116-0000059

PATIENT
  Age: 48 Year
  Sex: Male

DRUGS (2)
  1. DESOXYN [Suspect]
     Indication: DRUG USE FOR UNKNOWN INDICATION
     Dates: end: 20070101
  2. COCAINE [Suspect]
     Indication: DRUG USE FOR UNKNOWN INDICATION
     Dates: end: 20070101

REACTIONS (1)
  - DEATH [None]
